FAERS Safety Report 5241383-2 (Version None)
Quarter: 2007Q1

REPORT INFORMATION
  Report Type: 
  Country: None (occurrence: None)
  Receive Date: 20070215
  Receipt Date: 20070215
  Transmission Date: 20070707
  Serious: Yes (Life-Threatening, Hospitalization)
  Sender: FDA-Public Use
  Company Number: None

PATIENT
  Sex: Female
  Weight: 68.0396 kg

DRUGS (6)
  1. CELEXA [Suspect]
     Indication: DEPRESSION
     Dosage: 80MG 1 TABLET QAM ORAL
     Route: 048
     Dates: start: 20061201
  2. IMITREX [Suspect]
     Indication: MIGRAINE
     Dosage: 100MG PRN FOR MIGRAINE ORAL
     Route: 048
  3. ESTROGEN PATCHES [Concomitant]
  4. TOPAMAX [Concomitant]
  5. BUSPIRONE HCL [Concomitant]
  6. TRIAMTERENE AND HYDROCHLOROTHIAZIDE [Concomitant]

REACTIONS (1)
  - SEROTONIN SYNDROME [None]
